FAERS Safety Report 12695036 (Version 2)
Quarter: 2016Q4

REPORT INFORMATION
  Report Type: Spontaneous
  Country: US (occurrence: US)
  Receive Date: 20160829
  Receipt Date: 20161010
  Transmission Date: 20170207
  Serious: Yes (Death)
  Sender: FDA-Public Use
  Company Number: US-CELGENEUS-USA-2016084859

PATIENT
  Age: 62 Year
  Sex: Male

DRUGS (1)
  1. OTEZLA [Suspect]
     Active Substance: APREMILAST
     Indication: PSORIASIS
     Dosage: 60 MILLIGRAM
     Route: 048
     Dates: start: 201503, end: 20160809

REACTIONS (1)
  - Streptococcal endocarditis [Fatal]

NARRATIVE: CASE EVENT DATE: 20160809
